FAERS Safety Report 10028315 (Version 1)
Quarter: 2014Q1

REPORT INFORMATION
  Report Type: Spontaneous
  Country: DE (occurrence: None)
  Receive Date: 20140307
  Receipt Date: 20140307
  Transmission Date: 20141002
  Serious: Yes (Other)
  Sender: FDA-Public Use
  Company Number: 2014SA014313

PATIENT
  Age: 53 Year
  Sex: Female
  Weight: 60.2 kg

DRUGS (2)
  1. AUBAGIO [Suspect]
     Indication: MULTIPLE SCLEROSIS RELAPSE
     Route: 048
     Dates: start: 20131120, end: 20140121
  2. LAMOTRIGINE [Concomitant]

REACTIONS (3)
  - Grand mal convulsion [None]
  - Diarrhoea [None]
  - Nausea [None]
